FAERS Safety Report 9827981 (Version 1)
Quarter: 2013Q4

REPORT INFORMATION
  Report Type: Spontaneous
  Country: US (occurrence: None)
  Receive Date: 20131120
  Receipt Date: 20131120
  Transmission Date: 20140711
  Serious: Yes (Other)
  Sender: FDA-Public Use
  Company Number: ACC420120001

PATIENT
  Age: 58 Year
  Sex: Female
  Weight: 58.97 kg

DRUGS (3)
  1. ACETAMINOPHEN + CODEINE PHOSPHATE [Suspect]
     Indication: DRUG ABUSE
  2. MORPHINE SULFATE ER [Suspect]
  3. METFORMIN (METFORMIN) [Suspect]

REACTIONS (1)
  - Drug abuse [None]
